FAERS Safety Report 17281830 (Version 5)
Quarter: 2020Q2

REPORT INFORMATION
  Report Type: Spontaneous
  Country: JP (occurrence: JP)
  Receive Date: 20200117
  Receipt Date: 20200403
  Transmission Date: 20200713
  Serious: Yes (Death, Hospitalization, Other)
  Sender: FDA-Public Use
  Company Number: JP-ASTRAZENECA-2020SE06710

PATIENT
  Age: 80 Year
  Sex: Female
  Weight: 41 kg

DRUGS (2)
  1. TAGRISSO [Suspect]
     Active Substance: OSIMERTINIB
     Indication: NON-SMALL CELL LUNG CANCER
     Route: 048
     Dates: start: 20191002, end: 20191227
  2. VALSARTAN. [Concomitant]
     Active Substance: VALSARTAN
     Indication: HYPERTENSION
     Route: 048
     Dates: end: 20191227

REACTIONS (10)
  - Cardiac dysfunction [Fatal]
  - General physical health deterioration [Unknown]
  - Cardiac failure [Fatal]
  - Pleural effusion [Unknown]
  - Diarrhoea [Recovered/Resolved]
  - Tachycardia induced cardiomyopathy [Unknown]
  - Rash [Recovered/Resolved]
  - Cardiac output decreased [Fatal]
  - Hypoperfusion [Unknown]
  - Atrial fibrillation [Unknown]

NARRATIVE: CASE EVENT DATE: 20191003
